FAERS Safety Report 4301189-5 (Version None)
Quarter: 2004Q1

REPORT INFORMATION
  Report Type: 
  Country: None (occurrence: None)
  Receive Date: 20040218
  Receipt Date: 20031223
  Transmission Date: 20041129
  Serious: No
  Sender: FDA-Public Use
  Company Number: 2003-12-1705

PATIENT
  Sex: Female

DRUGS (1)
  1. PEG-INTRON [Suspect]
     Route: 058

REACTIONS (2)
  - MALAISE [None]
  - THINKING ABNORMAL [None]
